FAERS Safety Report 5345975-1 (Version None)
Quarter: 2007Q2

REPORT INFORMATION
  Report Type: 
  Country: None (occurrence: None)
  Receive Date: 20070605
  Receipt Date: 20070529
  Transmission Date: 20071010
  Serious: No
  Sender: FDA-Public Use
  Company Number: US-BAXTER-2007BH004878

PATIENT
  Sex: Female

DRUGS (3)
  1. VINORELBINE TARTRATE [Suspect]
     Indication: BREAST CANCER METASTATIC
     Route: 042
  2. TRASTUZUMAB [Suspect]
     Indication: BREAST CANCER METASTATIC
     Route: 042
  3. TRASTUZUMAB [Suspect]
     Route: 042

REACTIONS (2)
  - CARDIAC FAILURE [None]
  - EJECTION FRACTION DECREASED [None]
